FAERS Safety Report 17733705 (Version 1)
Quarter: 2020Q2

REPORT INFORMATION
  Report Type: Spontaneous
  Country: IN (occurrence: IN)
  Receive Date: 20200501
  Receipt Date: 20200501
  Transmission Date: 20200714
  Serious: Yes (Hospitalization, Other)
  Sender: FDA-Public Use
  Company Number: IN-ALVOGEN-2020-ALVOGEN-108269

PATIENT
  Age: 58 Year
  Sex: Male

DRUGS (1)
  1. DISULFIRAM. [Suspect]
     Active Substance: DISULFIRAM
     Indication: ALCOHOLISM
     Dosage: FOR THE LAST 4 MONTHS

REACTIONS (3)
  - Alcohol interaction [Unknown]
  - Cerebral infarction [Unknown]
  - Intestinal ischaemia [Unknown]
